FAERS Safety Report 7739400-0 (Version None)
Quarter: 2011Q3

REPORT INFORMATION
  Report Type: 
  Country: None (occurrence: None)
  Receive Date: 20110909
  Receipt Date: 20110830
  Transmission Date: 20111222
  Serious: Yes (Life-Threatening, Hospitalization, Other)
  Sender: FDA-Public Use
  Company Number: GB-RANBAXY-2011R1-45323

PATIENT
  Age: 56 Year
  Sex: Female
  Weight: 76 kg

DRUGS (4)
  1. ENALAPRIL MALEATE [Concomitant]
     Indication: PRODUCT USED FOR UNKNOWN INDICATION
     Dosage: UNK
     Route: 065
  2. LEVOTHYROXINE SODIUM [Concomitant]
     Indication: PRODUCT USED FOR UNKNOWN INDICATION
     Dosage: 50MG, UNK
     Route: 065
  3. AMOXICILLIN [Suspect]
     Indication: PRODUCT USED FOR UNKNOWN INDICATION
     Dosage: 500 MG, TID
     Route: 065
     Dates: start: 20110303, end: 20110331
  4. ATENOLOL [Concomitant]
     Indication: PRODUCT USED FOR UNKNOWN INDICATION
     Dosage: UNK
     Route: 065

REACTIONS (8)
  - SWELLING FACE [None]
  - OEDEMA PERIPHERAL [None]
  - NAUSEA [None]
  - DERMATITIS ALLERGIC [None]
  - WHEEZING [None]
  - ANAPHYLACTIC REACTION [None]
  - SWOLLEN TONGUE [None]
  - LIP SWELLING [None]
